FAERS Safety Report 9165580 (Version 3)
Quarter: 2013Q3

REPORT INFORMATION
  Report Type: Spontaneous
  Country: US (occurrence: US)
  Receive Date: 20130315
  Receipt Date: 20130723
  Transmission Date: 20140515
  Serious: Yes (Other)
  Sender: FDA-Public Use
  Company Number: US-ROCHE-1080688

PATIENT
  Age: 15 Year
  Sex: Male
  Weight: 62.65 kg

DRUGS (2)
  1. ACCUTANE [Suspect]
     Indication: ACNE
     Route: 048
     Dates: start: 2000, end: 2001
  2. ACCUTANE [Suspect]
     Route: 048
     Dates: start: 200109, end: 200202

REACTIONS (10)
  - Crohn^s disease [Unknown]
  - Inflammatory bowel disease [Unknown]
  - Anxiety [Unknown]
  - Intestinal obstruction [Unknown]
  - Colitis [Unknown]
  - Visual impairment [Unknown]
  - Cheilitis [Unknown]
  - Dry eye [Unknown]
  - Eczema [Unknown]
  - Impetigo [Unknown]
